FAERS Safety Report 21245395 (Version 1)
Quarter: 2022Q3

REPORT INFORMATION
  Report Type: Spontaneous
  Country: US (occurrence: US)
  Receive Date: 20220824
  Receipt Date: 20220824
  Transmission Date: 20221026
  Serious: No
  Sender: FDA-Public Use
  Company Number: US-JNJFOC-20220837893

PATIENT
  Age: 58 Year
  Sex: Female

DRUGS (32)
  1. SUDAFED [Suspect]
     Active Substance: PSEUDOEPHEDRINE HYDROCHLORIDE
     Indication: Sinus congestion
     Route: 065
     Dates: start: 2022
  2. SUDAFED [Suspect]
     Active Substance: PSEUDOEPHEDRINE HYDROCHLORIDE
     Indication: Ear discomfort
  3. SUDAFED [Suspect]
     Active Substance: PSEUDOEPHEDRINE HYDROCHLORIDE
     Indication: Cough
  4. SUDAFED [Suspect]
     Active Substance: PSEUDOEPHEDRINE HYDROCHLORIDE
     Indication: Headache
  5. SUDAFED [Suspect]
     Active Substance: PSEUDOEPHEDRINE HYDROCHLORIDE
     Indication: Lymphadenopathy
  6. SUDAFED [Suspect]
     Active Substance: PSEUDOEPHEDRINE HYDROCHLORIDE
     Indication: Oropharyngeal pain
  7. SUDAFED [Suspect]
     Active Substance: PSEUDOEPHEDRINE HYDROCHLORIDE
     Indication: Throat irritation
  8. SUDAFED [Suspect]
     Active Substance: PSEUDOEPHEDRINE HYDROCHLORIDE
     Indication: Sneezing
  9. TYLENOL [Concomitant]
     Active Substance: ACETAMINOPHEN
     Indication: Sinus congestion
     Route: 065
     Dates: start: 2022
  10. TYLENOL [Concomitant]
     Active Substance: ACETAMINOPHEN
     Indication: Ear discomfort
  11. TYLENOL [Concomitant]
     Active Substance: ACETAMINOPHEN
     Indication: Cough
  12. TYLENOL [Concomitant]
     Active Substance: ACETAMINOPHEN
     Indication: Headache
  13. TYLENOL [Concomitant]
     Active Substance: ACETAMINOPHEN
     Indication: Lymphadenopathy
  14. TYLENOL [Concomitant]
     Active Substance: ACETAMINOPHEN
     Indication: Oropharyngeal pain
  15. TYLENOL [Concomitant]
     Active Substance: ACETAMINOPHEN
     Indication: Throat irritation
  16. TYLENOL [Concomitant]
     Active Substance: ACETAMINOPHEN
     Indication: Sneezing
  17. MOTRIN [Concomitant]
     Active Substance: IBUPROFEN
     Indication: Sinus congestion
     Route: 065
     Dates: start: 2022
  18. MOTRIN [Concomitant]
     Active Substance: IBUPROFEN
     Indication: Ear discomfort
  19. MOTRIN [Concomitant]
     Active Substance: IBUPROFEN
     Indication: Cough
  20. MOTRIN [Concomitant]
     Active Substance: IBUPROFEN
     Indication: Headache
  21. MOTRIN [Concomitant]
     Active Substance: IBUPROFEN
     Indication: Lymphadenopathy
  22. MOTRIN [Concomitant]
     Active Substance: IBUPROFEN
     Indication: Oropharyngeal pain
  23. MOTRIN [Concomitant]
     Active Substance: IBUPROFEN
     Indication: Throat irritation
  24. MOTRIN [Concomitant]
     Active Substance: IBUPROFEN
     Indication: Sneezing
  25. MUCINEX [Concomitant]
     Active Substance: GUAIFENESIN
     Indication: Sinus congestion
     Route: 065
     Dates: start: 2022
  26. MUCINEX [Concomitant]
     Active Substance: GUAIFENESIN
     Indication: Ear discomfort
  27. MUCINEX [Concomitant]
     Active Substance: GUAIFENESIN
     Indication: Cough
  28. MUCINEX [Concomitant]
     Active Substance: GUAIFENESIN
     Indication: Headache
  29. MUCINEX [Concomitant]
     Active Substance: GUAIFENESIN
     Indication: Lymphadenopathy
  30. MUCINEX [Concomitant]
     Active Substance: GUAIFENESIN
     Indication: Oropharyngeal pain
  31. MUCINEX [Concomitant]
     Active Substance: GUAIFENESIN
     Indication: Throat irritation
  32. MUCINEX [Concomitant]
     Active Substance: GUAIFENESIN
     Indication: Sneezing

REACTIONS (2)
  - Product use in unapproved indication [Unknown]
  - Therapeutic response unexpected [Unknown]
